FAERS Safety Report 6674602-6 (Version None)
Quarter: 2010Q2

REPORT INFORMATION
  Report Type: 
  Country: None (occurrence: None)
  Receive Date: 20100409
  Receipt Date: 20100401
  Transmission Date: 20101027
  Serious: Yes (Hospitalization)
  Sender: FDA-Public Use
  Company Number: DE-ROCHE-688972

PATIENT
  Sex: Female
  Weight: 79 kg

DRUGS (2)
  1. CAPECITABINE [Suspect]
     Dosage: FREQ: 4-0-4 TEMPORARILY INTERRUPTED.
     Route: 048
     Dates: start: 20100212, end: 20100312
  2. PACLITAXEL [Suspect]
     Dosage: ROUTE: PORT DOSE FORM: INTRAVENOUS FREQUENCY: D1, D8, D15
     Route: 042
     Dates: start: 20100212, end: 20100312

REACTIONS (2)
  - MUCOSAL INFLAMMATION [None]
  - PNEUMONIA [None]
